FAERS Safety Report 4898441-1 (Version None)
Quarter: 2006Q1

REPORT INFORMATION
  Report Type: 
  Country: None (occurrence: None)
  Receive Date: 20060131
  Receipt Date: 20060131
  Transmission Date: 20060701
  Serious: Yes (Other)
  Sender: FDA-Public Use
  Company Number: None

PATIENT
  Sex: Male
  Weight: 81.6475 kg

DRUGS (1)
  1. LUNESTA [Suspect]
     Indication: SLEEP DISORDER
     Dosage: 1 NIGHTLY PO
     Route: 048
     Dates: start: 20050120, end: 20060120

REACTIONS (6)
  - DIZZINESS [None]
  - DRUG EFFECT INCREASED [None]
  - FEELING ABNORMAL [None]
  - HYPERSOMNIA [None]
  - MALAISE [None]
  - PHARMACEUTICAL PRODUCT COMPLAINT [None]
